FAERS Safety Report 18508766 (Version 2)
Quarter: 2020Q4

REPORT INFORMATION
  Report Type: Report from Study
  Country: DE (occurrence: DE)
  Receive Date: 20201117
  Receipt Date: 20201215
  Transmission Date: 20210114
  Serious: Yes (Death, Other)
  Sender: FDA-Public Use
  Company Number: DE-BIOGEN-2020BI00946244

PATIENT
  Age: 0 Day
  Sex: Female
  Weight: 5.4 kg

DRUGS (1)
  1. TYSABRI [Suspect]
     Active Substance: NATALIZUMAB
     Indication: MATERNAL EXPOSURE TIMING UNSPECIFIED
     Route: 064
     Dates: start: 20120615, end: 20140515

REACTIONS (5)
  - Premature baby [Recovered/Resolved]
  - Foetal exposure during pregnancy [Recovered/Resolved]
  - Immature respiratory system [Fatal]
  - Low birth weight baby [Recovered/Resolved]
  - Pneumothorax [Fatal]

NARRATIVE: CASE EVENT DATE: 20141022
